FAERS Safety Report 10418088 (Version 1)
Quarter: 2014Q2

REPORT INFORMATION
  Report Type: Spontaneous
  Country: US (occurrence: None)
  Receive Date: 20140609
  Receipt Date: 20140609
  Transmission Date: 20141212
  Serious: No
  Sender: FDA-Public Use
  Company Number: 2014TUS001273

PATIENT
  Sex: Male

DRUGS (4)
  1. BRINTELLIX (VORTIOXETINE) TABLET, 10MG [Suspect]
     Route: 048
     Dates: start: 201402, end: 201402
  2. TRAZODONE [Concomitant]
  3. SEROQUEL (QUETIAPINE FUMARATE) [Concomitant]
  4. ALL OTHER THERAPEUTIC PRODUCTS (OTHER UNKNOWN MEDICATIONS) [Concomitant]

REACTIONS (1)
  - Anger [None]
